FAERS Safety Report 6648836-0 (Version None)
Quarter: 2010Q1

REPORT INFORMATION
  Report Type: 
  Country: None (occurrence: None)
  Receive Date: 20100324
  Receipt Date: 20100315
  Transmission Date: 20100710
  Serious: Yes (Other)
  Sender: FDA-Public Use
  Company Number: PHEH2009US13624

PATIENT
  Sex: Male

DRUGS (14)
  1. TASIGNA [Suspect]
     Indication: CHRONIC MYELOID LEUKAEMIA
     Dosage: 400 MG, BID
     Dates: start: 20081001
  2. INSULIN [Concomitant]
  3. CRESTOR [Concomitant]
     Dosage: 40 MG DAILY
     Route: 048
  4. METOPROLOL [Concomitant]
     Dosage: 12.5 MG, BID
     Route: 048
  5. PRILOSEC [Concomitant]
  6. VITAMIN D [Concomitant]
     Dosage: 1000 MG, BID
     Route: 048
  7. ADVAIR DISKUS 100/50 [Concomitant]
     Dosage: 1 PUFF BID
  8. APIDRA [Concomitant]
     Dosage: UNK
  9. ASPIRIN [Concomitant]
     Dosage: 81 MG DAILY
     Route: 048
  10. BACTRIM [Concomitant]
     Dosage: 400/80 MG DAILY
     Route: 048
  11. LANTUS [Concomitant]
     Dosage: 50 UNITS SQ AT BEDTIME
  12. LASIX [Concomitant]
     Dosage: 20 MG DAILY
     Route: 048
  13. PLAVIX [Concomitant]
     Dosage: 75 MG DAILY
     Route: 048
  14. SPIRIVA [Concomitant]
     Dosage: 18 MCG CAPSULE INHALATION DAILY

REACTIONS (4)
  - ARTERIAL BYPASS OPERATION [None]
  - GLOSSODYNIA [None]
  - IMPAIRED HEALING [None]
  - POST PROCEDURAL DRAINAGE [None]
